FAERS Safety Report 23369810 (Version 1)
Quarter: 2024Q1

REPORT INFORMATION
  Report Type: Spontaneous
  Country: CN (occurrence: None)
  Receive Date: 20240105
  Receipt Date: 20240105
  Transmission Date: 20240409
  Serious: Yes (Hospitalization, Other)
  Sender: FDA-Public Use
  Company Number: 2024A000982

PATIENT
  Age: 19894 Day
  Sex: Male
  Weight: 75 kg

DRUGS (6)
  1. DURVALUMAB [Suspect]
     Active Substance: DURVALUMAB
     Indication: Hepatic cancer
     Route: 042
     Dates: start: 20231213, end: 20231213
  2. PACLITAXEL [Suspect]
     Active Substance: PACLITAXEL
     Indication: Hepatic cancer
     Route: 041
     Dates: start: 20231206, end: 20231206
  3. SODIUM CHLORIDE [Concomitant]
     Active Substance: SODIUM CHLORIDE
     Indication: Adjuvant therapy
     Route: 041
     Dates: start: 20231206, end: 20231206
  4. SODIUM CHLORIDE [Concomitant]
     Active Substance: SODIUM CHLORIDE
     Indication: Ill-defined disorder
     Route: 041
     Dates: start: 20231206, end: 20231206
  5. SODIUM CHLORIDE [Concomitant]
     Active Substance: SODIUM CHLORIDE
     Indication: Adjuvant therapy
     Route: 041
     Dates: start: 20231213, end: 20231213
  6. SODIUM CHLORIDE [Concomitant]
     Active Substance: SODIUM CHLORIDE
     Indication: Ill-defined disorder
     Route: 041
     Dates: start: 20231213, end: 20231213

REACTIONS (2)
  - Full blood count decreased [Recovering/Resolving]
  - Myelosuppression [Recovered/Resolved]

NARRATIVE: CASE EVENT DATE: 20231216
